FAERS Safety Report 7544809-4 (Version None)
Quarter: 2011Q2

REPORT INFORMATION
  Report Type: 
  Country: None (occurrence: None)
  Receive Date: 20110614
  Receipt Date: 20090416
  Transmission Date: 20111010
  Serious: Yes (Death, Other)
  Sender: FDA-Public Use
  Company Number: US-BAYER-200918367NA

PATIENT
  Age: 61 Year
  Sex: Female
  Weight: 98 kg

DRUGS (11)
  1. TRASYLOL [Suspect]
     Indication: TRICUSPID VALVE REPAIR
  2. HEPARIN [Concomitant]
     Dosage: 16000 UNITS
     Route: 042
  3. INSULIN [Concomitant]
     Dosage: 20 UNITS
     Route: 042
     Dates: start: 20050214, end: 20050214
  4. TRASYLOL [Suspect]
     Indication: MITRAL VALVE REPLACEMENT
     Dosage: 200 ML LOADING DOSE FOLLOWED BY 50 ML/HOUR INFUSION
     Route: 042
     Dates: start: 20050214, end: 20050214
  5. PLAVIX [Concomitant]
     Dosage: 75MG DAILY
  6. ZAROXOLYN [Concomitant]
     Dosage: 5MG MONDAY,WEDNESDAY +FRIDAY WITH MORNING LASIX
     Dates: start: 20050105, end: 20050105
  7. VANCOMYCIN [Concomitant]
     Dosage: 1 GRAM
     Route: 042
     Dates: start: 20050214, end: 20050214
  8. CARDIOPLEGIA [Concomitant]
     Dosage: 390
     Route: 042
     Dates: start: 20050214, end: 20050214
  9. ALDACTONE [Concomitant]
     Dosage: 250 MG DAILY
  10. VANCOMYCIN [Concomitant]
     Dosage: 1GM EVERY 24 HRS
     Route: 042
     Dates: start: 20050114
  11. GENTAMYCIN SULFATE [Concomitant]
     Dosage: 180
     Route: 042

REACTIONS (9)
  - ANHEDONIA [None]
  - DEATH [None]
  - UNEVALUABLE EVENT [None]
  - FEAR [None]
  - INJURY [None]
  - ANXIETY [None]
  - PAIN [None]
  - DEPRESSION [None]
  - RENAL FAILURE [None]
